FAERS Safety Report 6939121-8 (Version None)
Quarter: 2010Q3

REPORT INFORMATION
  Report Type: 
  Country: None (occurrence: None)
  Receive Date: 20100824
  Receipt Date: 20100812
  Transmission Date: 20110219
  Serious: Yes (Hospitalization, Other)
  Sender: FDA-Public Use
  Company Number: US-PFIZER INC-2010073513

PATIENT
  Sex: Female

DRUGS (28)
  1. CHANTIX [Suspect]
     Indication: SMOKING CESSATION THERAPY
     Dosage: 0.5MG (11), 1MG (3X4) TABS IN DOSE PACK
     Dates: start: 20070801, end: 20090401
  2. FLOVENT [Concomitant]
     Indication: ASTHMA
     Dosage: UNK
     Dates: start: 19990101, end: 20090201
  3. FLOVENT [Concomitant]
     Indication: RHINITIS ALLERGIC
  4. ACETAMINOPHEN AND HYDROCODONE BITARTRATE [Concomitant]
     Indication: PAIN
     Dosage: UNK
     Dates: start: 20020101, end: 20091001
  5. ALBUTEROL [Concomitant]
     Indication: ASTHMA
     Dosage: UNK
     Dates: start: 20040301, end: 20080101
  6. ALBUTEROL [Concomitant]
     Indication: BRONCHITIS
  7. ESTRACE [Concomitant]
     Indication: VULVOVAGINAL DRYNESS
     Dosage: UNK
     Dates: start: 20040801, end: 20090201
  8. ESTRACE [Concomitant]
     Indication: VAGINAL PROLAPSE
  9. ATENOLOL [Concomitant]
     Indication: HYPERTENSION
     Dosage: UNK
     Dates: start: 20041201, end: 20090201
  10. ADVAIR DISKUS 100/50 [Concomitant]
     Indication: ASTHMA
     Dosage: UNK
     Dates: start: 20050601, end: 20090201
  11. VICODIN [Concomitant]
     Indication: PAIN
     Dosage: UNK
     Dates: start: 20050801, end: 20100401
  12. VICODIN [Concomitant]
     Indication: CLAVICLE FRACTURE
  13. VICODIN [Concomitant]
  14. LOVASTATIN [Concomitant]
     Indication: HYPERLIPIDAEMIA
     Dosage: UNK
     Dates: start: 20060101
  15. CELEXA [Concomitant]
     Indication: DEPRESSION
     Dosage: UNK
     Dates: start: 20061101
  16. CELEXA [Concomitant]
     Indication: DYSTHYMIC DISORDER
  17. SEROQUEL [Concomitant]
     Indication: ANXIETY
     Dosage: UNK
     Dates: start: 20061201
  18. SEROQUEL [Concomitant]
     Indication: ADJUSTMENT DISORDER WITH ANXIETY
  19. SEROQUEL [Concomitant]
     Indication: SLEEP DISORDER
  20. FLEXERIL [Concomitant]
     Indication: NECK PAIN
     Dosage: UNK
     Dates: start: 20070101
  21. FLEXERIL [Concomitant]
     Indication: BACK PAIN
  22. FLEXERIL [Concomitant]
     Indication: SPINAL COLUMN STENOSIS
  23. NEURONTIN [Concomitant]
     Indication: NECK PAIN
     Dosage: UNK
     Dates: start: 20060901
  24. NEURONTIN [Concomitant]
     Indication: SPINE MALFORMATION
  25. NEURONTIN [Concomitant]
     Indication: BACK PAIN
  26. NEURONTIN [Concomitant]
     Indication: INTERVERTEBRAL DISC PROTRUSION
  27. NEURONTIN [Concomitant]
     Indication: SPINAL COLUMN STENOSIS
  28. PROVERA [Concomitant]
     Indication: HORMONE REPLACEMENT THERAPY
     Dosage: UNK
     Dates: start: 20070701, end: 20090201

REACTIONS (7)
  - ADJUSTMENT DISORDER [None]
  - ANHEDONIA [None]
  - ANXIETY [None]
  - DEPRESSION [None]
  - MENTAL DISORDER [None]
  - PSYCHOTIC DISORDER [None]
  - SUICIDE ATTEMPT [None]
